FAERS Safety Report 10420832 (Version 1)
Quarter: 2014Q3

REPORT INFORMATION
  Report Type: Spontaneous
  Country: US (occurrence: None)
  Receive Date: 20140829
  Receipt Date: 20140829
  Transmission Date: 20150326
  Serious: Yes (Other)
  Sender: FDA-Public Use
  Company Number: None

PATIENT
  Age: 59 Year
  Sex: Female

DRUGS (3)
  1. SOVALDI [Concomitant]
     Active Substance: SOFOSBUVIR
  2. RIBASPHERE RIBAPAK [Concomitant]
     Active Substance: RIBAVIRIN
  3. PEGASYS [Suspect]
     Active Substance: PEGINTERFERON ALFA-2A
     Route: 058
     Dates: start: 20140421

REACTIONS (7)
  - Arthralgia [None]
  - Asthenia [None]
  - Rash [None]
  - Blindness unilateral [None]
  - Abdominal discomfort [None]
  - Visual impairment [None]
  - Disturbance in attention [None]

NARRATIVE: CASE EVENT DATE: 20140804
